FAERS Safety Report 4837637-1 (Version None)
Quarter: 2005Q4

REPORT INFORMATION
  Report Type: 
  Country: None (occurrence: None)
  Receive Date: 20051024
  Receipt Date: 20050801
  Transmission Date: 20060501
  Serious: No
  Sender: FDA-Public Use
  Company Number: 216281

PATIENT
  Age: 57 Year
  Sex: Female
  Weight: 111 kg

DRUGS (15)
  1. XOLAIR [Suspect]
     Indication: ASTHMA
     Dosage: 300 MG, Q4W, SUBCUTANEOUS
     Route: 058
  2. FLONASE [Concomitant]
  3. ADVAIR (SALMETEROL XINAFOATE, FLUTICASONE PROPIONATE) [Concomitant]
  4. ACCOLATE [Concomitant]
  5. SPIRIVA [Concomitant]
  6. DULCOLAX [Concomitant]
  7. ZOLOFT [Concomitant]
  8. ALLEGRA [Concomitant]
  9. CALCIUM GLUCONATE [Concomitant]
  10. CENTRUM SILVER (MULTIVITAMINS NOS, MINERALS NOS) [Concomitant]
  11. RANITIDINE [Concomitant]
  12. CARDURA [Concomitant]
  13. NORVASC [Concomitant]
  14. LASIX [Concomitant]
  15. TYLENOL #3 (UNITED STATES) (ACETAMINOPHEN, CODEINE PHOSPHATE) [Concomitant]

REACTIONS (1)
  - DYSPHONIA [None]
